FAERS Safety Report 17200022 (Version 1)
Quarter: 2019Q4

REPORT INFORMATION
  Report Type: Spontaneous
  Country: FR (occurrence: FR)
  Receive Date: 20191226
  Receipt Date: 20191226
  Transmission Date: 20200122
  Serious: Yes (Hospitalization)
  Sender: FDA-Public Use
  Company Number: FR-TEVA-2019-FR-1157320

PATIENT
  Age: 3 Year
  Sex: Female
  Weight: 12.4 kg

DRUGS (3)
  1. COSMEGEN [Suspect]
     Active Substance: DACTINOMYCIN
     Dosage: 0.84MG, 1 CYCLICAL
     Route: 042
     Dates: start: 20171230, end: 20171230
  2. ENDOXAN 1000 MG, POUDRE POUR SOLUTION INJECTABLE [Suspect]
     Active Substance: CYCLOPHOSPHAMIDE
     Indication: RHABDOMYOSARCOMA
     Dosage: 420MG, 1 CYCLICAL
     Route: 042
     Dates: start: 20171230, end: 20171230
  3. ONCOVIN [Suspect]
     Active Substance: VINCRISTINE SULFATE
     Indication: RHABDOMYOSARCOMA
     Dosage: 0.84MG, 1 CYCLICAL
     Route: 042
     Dates: start: 20171230, end: 20171230

REACTIONS (2)
  - Febrile bone marrow aplasia [Recovered/Resolved]
  - Febrile bone marrow aplasia [Recovered/Resolved]

NARRATIVE: CASE EVENT DATE: 20180108
